FAERS Safety Report 15559243 (Version 1)
Quarter: 2018Q4

REPORT INFORMATION
  Report Type: Report from Study
  Country: None (occurrence: BR)
  Receive Date: 20181029
  Receipt Date: 20181029
  Transmission Date: 20190205
  Serious: Yes (Hospitalization)
  Sender: FDA-Public Use
  Company Number: BR-ABBVIE-18K-020-2531492-00

PATIENT
  Age: 23 Year
  Sex: Female
  Weight: 54 kg

DRUGS (3)
  1. DRAMIN B6 [Concomitant]
     Indication: NAUSEA
  2. PHENERGAN [Concomitant]
     Active Substance: PROMETHAZINE HYDROCHLORIDE
     Indication: PRODUCT USED FOR UNKNOWN INDICATION
  3. HUMIRA [Suspect]
     Active Substance: ADALIMUMAB
     Indication: ANKYLOSING SPONDYLITIS
     Route: 058
     Dates: start: 20160502

REACTIONS (7)
  - Sinusitis [Recovered/Resolved]
  - Nausea [Unknown]
  - Lymphadenitis bacterial [Unknown]
  - Headache [Unknown]
  - Pharyngitis [Recovered/Resolved]
  - Migraine [Unknown]
  - Pain [Unknown]

NARRATIVE: CASE EVENT DATE: 201809
